FAERS Safety Report 6422792-2 (Version None)
Quarter: 2009Q4

REPORT INFORMATION
  Report Type: 
  Country: None (occurrence: None)
  Receive Date: 20091102
  Receipt Date: 20091019
  Transmission Date: 20100525
  Serious: Yes (Other)
  Sender: FDA-Public Use
  Company Number: PHEH2009US13012

PATIENT
  Sex: Female

DRUGS (4)
  1. GLEEVEC [Suspect]
     Indication: GLIOBLASTOMA MULTIFORME
     Dosage: 400 MG, DAILY
     Route: 048
  2. HYDREA [Suspect]
     Indication: GLIOBLASTOMA MULTIFORME
     Dosage: 500 QD
     Route: 048
  3. KEPPRA [Suspect]
     Indication: GLIOBLASTOMA MULTIFORME
  4. AVASTIN [Suspect]
     Indication: GLIOBLASTOMA MULTIFORME
     Dosage: 10 MG/KG
     Route: 042

REACTIONS (5)
  - DIZZINESS [None]
  - FATIGUE [None]
  - MALIGNANT NEOPLASM PROGRESSION [None]
  - NAUSEA [None]
  - NECK PAIN [None]
